FAERS Safety Report 7789186-9 (Version None)
Quarter: 2011Q3

REPORT INFORMATION
  Report Type: 
  Country: None (occurrence: None)
  Receive Date: 20110930
  Receipt Date: 20110926
  Transmission Date: 20111222
  Serious: Yes (Death)
  Sender: FDA-Public Use
  Company Number: NO-B.I. PHARMACEUTICALS,INC./RIDGEFIELD-2011-SW-00380NO

PATIENT
  Sex: Female

DRUGS (4)
  1. PRADAXA [Suspect]
     Dosage: 220 MG
     Dates: start: 20110726, end: 20110903
  2. SIMVASTATIN [Concomitant]
     Dosage: 40 MG
     Route: 048
  3. BUMETANIDE [Concomitant]
     Dosage: 2 MG
     Route: 048
  4. METOPROLOL [Concomitant]
     Dosage: 200 MG
     Route: 048

REACTIONS (1)
  - CEREBRAL HAEMORRHAGE [None]
